FAERS Safety Report 25401629 (Version 1)
Quarter: 2025Q2

REPORT INFORMATION
  Report Type: Spontaneous
  Country: US (occurrence: None)
  Receive Date: 20250604
  Receipt Date: 20250604
  Transmission Date: 20250717
  Serious: Yes (Life-Threatening)
  Sender: FDA-CTU
  Company Number: None

PATIENT
  Age: 25 Year
  Sex: Male
  Weight: 65.25 kg

DRUGS (5)
  1. OXBRYTA [Suspect]
     Active Substance: VOXELOTOR
     Indication: Sickle cell anaemia
     Dosage: OTHER QUANTITY : 90 TABLET(S);?FREQUENCY : EVERY 8 HOURS;?
     Route: 048
  2. OXYCODONE [Concomitant]
     Active Substance: OXYCODONE
  3. IBUPROFEN [Concomitant]
     Active Substance: IBUPROFEN
  4. VITAMIN D3 [Concomitant]
     Active Substance: CHOLECALCIFEROL
  5. GENTAMICIN 0.1 % TOPICAL OINTMENT [Concomitant]

REACTIONS (7)
  - Pain in extremity [None]
  - Blood bilirubin increased [None]
  - Serum ferritin increased [None]
  - Reticulocyte count increased [None]
  - Glomerular filtration rate increased [None]
  - Red blood cell morphology abnormal [None]
  - Haemoglobin S increased [None]

NARRATIVE: CASE EVENT DATE: 20220111
